FAERS Safety Report 21098515 (Version 1)
Quarter: 2022Q3

REPORT INFORMATION
  Report Type: Spontaneous
  Country: SE (occurrence: SE)
  Receive Date: 20220719
  Receipt Date: 20220719
  Transmission Date: 20221027
  Serious: Yes (Disabling)
  Sender: FDA-Public Use
  Company Number: None

PATIENT
  Age: 23 Year
  Sex: Female
  Weight: 55 kg

DRUGS (1)
  1. NUVARING [Suspect]
     Active Substance: ETHINYL ESTRADIOL\ETONOGESTREL
     Indication: Contraception
     Dosage: 0.120 MG/0.015 MG PER 24 HOURS 1 RING/MONTH (STRENGTH 0.120 MG/0.015 MG PER 24 HOURS VAGINAL DELIVER
     Route: 067
     Dates: start: 20210320, end: 20211022

REACTIONS (3)
  - Acne [Recovering/Resolving]
  - Fungal infection [Recovered/Resolved]
  - Mucosal dryness [Recovered/Resolved]

NARRATIVE: CASE EVENT DATE: 20210402
